FAERS Safety Report 4273307-9 (Version None)
Quarter: 2004Q1

REPORT INFORMATION
  Report Type: 
  Country: None (occurrence: None)
  Receive Date: 20040114
  Receipt Date: 20040109
  Transmission Date: 20041129
  Serious: Yes (Other)
  Sender: FDA-Public Use
  Company Number: 200310382BFR

PATIENT

DRUGS (2)
  1. IZILOX (MOXIFLOXACIN HYDROCHLORIDE) [Suspect]
  2. AVK (ANTIVITAMIN K (NOS)) (UNCODEABLE ^UNCLASSIFIABLE^) [Suspect]

REACTIONS (2)
  - DRUG INTERACTION [None]
  - INTERNATIONAL NORMALISED RATIO INCREASED [None]
